FAERS Safety Report 16998944 (Version 1)
Quarter: 2019Q4

REPORT INFORMATION
  Report Type: Spontaneous
  Country: US (occurrence: US)
  Receive Date: 20190924
  Receipt Date: 20190924
  Transmission Date: 20200122
  Serious: Yes (Hospitalization)
  Sender: FDA-Public Use
  Company Number: None

PATIENT
  Age: 67 Year
  Sex: Male

DRUGS (2)
  1. LACTULOSE. [Suspect]
     Active Substance: LACTULOSE
     Indication: HEPATITIS C
     Route: 048
     Dates: start: 20150820
  2. FUROSEMIDE. [Suspect]
     Active Substance: FUROSEMIDE
     Indication: CARDIAC FAILURE CONGESTIVE
     Route: 048
     Dates: start: 20150520

REACTIONS (12)
  - Oedema peripheral [None]
  - Oedema [None]
  - Pulmonary oedema [None]
  - Hepatic cirrhosis [None]
  - Treatment noncompliance [None]
  - Confusional state [None]
  - Fluid overload [None]
  - Hepatic encephalopathy [None]
  - Dyspnoea exertional [None]
  - Cardiac failure [None]
  - Diet noncompliance [None]
  - Weight increased [None]

NARRATIVE: CASE EVENT DATE: 20190807
